FAERS Safety Report 23324986 (Version 1)
Quarter: 2023Q4

REPORT INFORMATION
  Report Type: Spontaneous
  Country: US (occurrence: US)
  Receive Date: 20231221
  Receipt Date: 20231221
  Transmission Date: 20240110
  Serious: Yes (Hospitalization, Other)
  Sender: FDA-Public Use
  Company Number: US-SABAL THERAPEUTICS LLC-2023-ATH-000044

PATIENT

DRUGS (7)
  1. FENOFIBRIC ACID [Suspect]
     Active Substance: FENOFIBRIC ACID
     Indication: Product used for unknown indication
     Route: 065
  2. PEG/L-ASPARAGINASE [Suspect]
     Active Substance: PEGASPARGASE
     Indication: T-cell chronic lymphocytic leukaemia
     Route: 065
  3. VINCRISTINE [Concomitant]
     Active Substance: VINCRISTINE
     Indication: T-cell chronic lymphocytic leukaemia
     Route: 065
  4. METHOTREXATE [Concomitant]
     Active Substance: METHOTREXATE
     Indication: T-cell chronic lymphocytic leukaemia
     Route: 065
  5. CYTARABINE [Concomitant]
     Active Substance: CYTARABINE
     Indication: T-cell chronic lymphocytic leukaemia
     Route: 065
  6. METFORMIN [Concomitant]
     Active Substance: METFORMIN HYDROCHLORIDE
     Indication: Product used for unknown indication
     Route: 065
  7. ATORVASTATIN [Concomitant]
     Active Substance: ATORVASTATIN
     Indication: Product used for unknown indication
     Route: 065

REACTIONS (3)
  - Hypertriglyceridaemia [Recovered/Resolved]
  - Pancreatitis [Unknown]
  - Drug ineffective [Unknown]
